FAERS Safety Report 7163626-0 (Version None)
Quarter: 2010Q4

REPORT INFORMATION
  Report Type: 
  Country: None (occurrence: None)
  Receive Date: 20101215
  Receipt Date: 20100519
  Transmission Date: 20110411
  Serious: Yes (Other)
  Sender: FDA-Public Use
  Company Number: US-PFIZER INC-2010063767

PATIENT
  Sex: Female
  Weight: 126.8 kg

DRUGS (11)
  1. LYRICA [Suspect]
     Indication: SPONDYLITIS
     Dosage: 50 MG, 1X/DAY
     Route: 048
     Dates: start: 20100501, end: 20100501
  2. HUMIRA [Concomitant]
     Indication: SPONDYLITIS
     Dosage: 40 MG, WEEKLY
     Route: 058
  3. ZOLOFT [Concomitant]
     Indication: HOT FLUSH
     Dosage: 50 MG, 2X/DAY
     Route: 048
  4. ZOLOFT [Concomitant]
     Indication: MENOPAUSE
  5. DOXEPIN [Concomitant]
     Indication: SLEEP DISORDER
     Dosage: 50 MG, 1X/DAY
     Route: 048
  6. AMBIEN [Concomitant]
     Indication: SLEEP DISORDER
     Dosage: 10 MG, 1X/DAY
     Route: 048
  7. ASPIRIN [Concomitant]
     Indication: CORONARY ARTERY BYPASS
     Dosage: 325 MG, 1X/DAY
     Route: 048
     Dates: start: 20010101
  8. VITAMIN D3 [Concomitant]
     Dosage: 2000 IU, 2X/DAY
     Route: 048
  9. VITAMIN E [Concomitant]
     Dosage: 1300 MG, 2X/DAY
     Route: 048
  10. METFORMIN [Concomitant]
     Indication: DIABETES MELLITUS
     Dosage: 1000 MG, 2X/DAY
     Route: 048
  11. BYETTA [Concomitant]
     Indication: DIABETES MELLITUS
     Dosage: 5 UG, 2X/DAY
     Route: 058

REACTIONS (3)
  - DIARRHOEA [None]
  - GASTROINTESTINAL PAIN [None]
  - HAEMATOCHEZIA [None]
